FAERS Safety Report 17074102 (Version 1)
Quarter: 2019Q4

REPORT INFORMATION
  Report Type: Spontaneous
  Country: US (occurrence: US)
  Receive Date: 20191126
  Receipt Date: 20191126
  Transmission Date: 20200122
  Serious: Yes (Other)
  Sender: FDA-Public Use
  Company Number: US-ROCHE-2477389

PATIENT
  Sex: Female

DRUGS (5)
  1. SALMETEROL [Concomitant]
     Active Substance: SALMETEROL
  2. CLARITIN [Concomitant]
     Active Substance: LORATADINE
  3. PREDNISONE. [Concomitant]
     Active Substance: PREDNISONE
  4. BUDESONIDE. [Concomitant]
     Active Substance: BUDESONIDE
  5. XOLAIR [Suspect]
     Active Substance: OMALIZUMAB
     Indication: BRONCHOPULMONARY ASPERGILLOSIS ALLERGIC
     Dosage: ONGOING:UNKNOWN
     Route: 065
     Dates: start: 201812

REACTIONS (3)
  - Tendon rupture [Recovered/Resolved]
  - Intentional product use issue [Unknown]
  - Off label use [Unknown]
